FAERS Safety Report 10331930 (Version 1)
Quarter: 2014Q3

REPORT INFORMATION
  Report Type: Spontaneous
  Country: CA (occurrence: None)
  Receive Date: 20140711
  Receipt Date: 20140711
  Transmission Date: 20150326
  Serious: Yes (Hospitalization, Other)
  Sender: FDA-Public Use
  Company Number: CA-145555

PATIENT
  Age: 1 Day
  Sex: Male

DRUGS (1)
  1. WINRHO SDF LIQUID [Suspect]
     Active Substance: HUMAN RHO(D) IMMUNE GLOBULIN
     Indication: ABORTION THREATENED
     Route: 064
     Dates: start: 20130906, end: 20130906

REACTIONS (7)
  - Abdominal pain [None]
  - Heart rate decreased [None]
  - Infantile colic [None]
  - Yellow skin [None]
  - Premature baby [None]
  - Maternal drugs affecting foetus [None]
  - Hypothermia [None]

NARRATIVE: CASE EVENT DATE: 201403
